FAERS Safety Report 4364975-1 (Version None)
Quarter: 2004Q2

REPORT INFORMATION
  Report Type: 
  Country: None (occurrence: None)
  Receive Date: 20040521
  Receipt Date: 20040512
  Transmission Date: 20050107
  Serious: Yes (Death, Other)
  Sender: FDA-Public Use
  Company Number: 2004031739

PATIENT
  Age: 50 Year
  Sex: Male

DRUGS (2)
  1. GABAPENTIN [Suspect]
     Indication: DIABETES MELLITUS
     Dosage: 1800 MG (300 MG) ORAL
     Route: 048
  2. GLICLAZIDE (GLICLAZIDE) [Concomitant]

REACTIONS (3)
  - CYSTIC FIBROSIS LUNG [None]
  - NEOPLASM MALIGNANT [None]
  - RENAL FAILURE ACUTE [None]
